FAERS Safety Report 11031519 (Version 1)
Quarter: 2015Q2

REPORT INFORMATION
  Report Type: Spontaneous
  Country: IT (occurrence: IT)
  Receive Date: 20150415
  Receipt Date: 20150415
  Transmission Date: 20150821
  Serious: Yes (Other)
  Sender: FDA-Public Use
  Company Number: IT-ROXANE LABORATORIES, INC.-2015-RO-00604RO

PATIENT
  Age: 16 Year
  Sex: Female

DRUGS (1)
  1. PREDNISONE. [Suspect]
     Active Substance: PREDNISONE
     Indication: EVANS SYNDROME
     Dosage: 50 MG
     Route: 065

REACTIONS (2)
  - Cushingoid [Unknown]
  - Giant cell epulis [Recovered/Resolved]

NARRATIVE: CASE EVENT DATE: 200701
